FAERS Safety Report 25514727 (Version 5)
Quarter: 2025Q4

REPORT INFORMATION
  Report Type: Spontaneous
  Country: US (occurrence: US)
  Receive Date: 20250703
  Receipt Date: 20251215
  Transmission Date: 20260118
  Serious: Yes (Other)
  Sender: BLUEPRINT MEDICINES
  Company Number: US-Blueprint Medicines Corporation-2025-AER-01432

PATIENT
  Age: 46 Year
  Sex: Female

DRUGS (3)
  1. AYVAKIT [Suspect]
     Active Substance: AVAPRITINIB
     Indication: Systemic mastocytosis
     Route: 065
     Dates: start: 20250513
  2. AYVAKIT [Suspect]
     Active Substance: AVAPRITINIB
     Route: 065
     Dates: start: 20250513
  3. MEDROL [Concomitant]
     Active Substance: METHYLPREDNISOLONE
     Indication: Condition aggravated
     Route: 065

REACTIONS (10)
  - Anaphylactic reaction [Unknown]
  - Malignant melanoma [Unknown]
  - Pruritus [Unknown]
  - Oral pruritus [Unknown]
  - Tongue pruritus [Unknown]
  - Food allergy [Unknown]
  - Fluid retention [Unknown]
  - Abdominal distension [Unknown]
  - Blood cholesterol increased [Unknown]
  - Blood triglycerides increased [Unknown]

NARRATIVE: CASE EVENT DATE: 20250716
